FAERS Safety Report 9858484 (Version 1)
Quarter: 2014Q1

REPORT INFORMATION
  Report Type: Spontaneous
  Country: US (occurrence: None)
  Receive Date: 20140130
  Receipt Date: 20140130
  Transmission Date: 20141002
  Serious: Yes (Other)
  Sender: FDA-Public Use
  Company Number: None

PATIENT
  Age: 30 Year
  Sex: Female

DRUGS (5)
  1. SIMPONI [Suspect]
     Indication: JUVENILE IDIOPATHIC ARTHRITIS
     Route: 058
     Dates: start: 20130208, end: 20130226
  2. PREDNISONE 5 MG [Concomitant]
  3. PROPANOLOL 80 MG [Concomitant]
  4. SULFASALAZINE 500 MG [Concomitant]
  5. CLARITIN [Concomitant]

REACTIONS (1)
  - Systemic lupus erythematosus [None]
